FAERS Safety Report 8622470-5 (Version None)
Quarter: 2012Q3

REPORT INFORMATION
  Report Type: 
  Country: None (occurrence: None)
  Receive Date: 20120827
  Receipt Date: 20120817
  Transmission Date: 20120928
  Serious: Yes (Hospitalization)
  Sender: FDA-Public Use
  Company Number: US-009507513-1208USA009348

PATIENT

DRUGS (11)
  1. SIMVASTATIN [Suspect]
  2. SIMVASTATIN [Suspect]
  3. RIBAVIRIN [Suspect]
  4. SIMVASTATIN [Suspect]
  5. BLINDED NARLAPREVIR [Suspect]
  6. SIMVASTATIN [Suspect]
  7. BLINDED BOCEPREVIR [Suspect]
  8. SIMVASTATIN [Suspect]
  9. SIMVASTATIN [Suspect]
  10. PEGINTERFERON ALFA-2B [Suspect]
  11. PLACEBO [Suspect]

REACTIONS (1)
  - HIP ARTHROPLASTY [None]
